FAERS Safety Report 6441582-8 (Version None)
Quarter: 2009Q4

REPORT INFORMATION
  Report Type: 
  Country: None (occurrence: None)
  Receive Date: 20091116
  Receipt Date: 20091102
  Transmission Date: 20100525
  Serious: Yes (Hospitalization)
  Sender: FDA-Public Use
  Company Number: DE-AMGEN-US373190

PATIENT
  Age: 74 Year
  Sex: Female

DRUGS (2)
  1. ENBREL [Suspect]
     Indication: RHEUMATOID ARTHRITIS
     Dosage: PRE-FILLED PEN: 50MG 1X1 WEEK
     Route: 058
     Dates: start: 20081202, end: 20091013
  2. ZALDIAR [Concomitant]
     Route: 048

REACTIONS (1)
  - JOINT SURGERY [None]
